FAERS Safety Report 25362440 (Version 1)
Quarter: 2025Q2

REPORT INFORMATION
  Report Type: Spontaneous
  Country: GB (occurrence: GB)
  Receive Date: 20250527
  Receipt Date: 20250527
  Transmission Date: 20250717
  Serious: Yes (Other)
  Sender: Steriscience PTE
  Company Number: GB-STERISCIENCE B.V.-2025-ST-000976

PATIENT
  Sex: Male
  Weight: 2 kg

DRUGS (6)
  1. LABETALOL [Suspect]
     Active Substance: LABETALOL
     Indication: Product used for unknown indication
     Route: 064
  2. LABETALOL [Suspect]
     Active Substance: LABETALOL
     Route: 063
  3. CINACALCET [Suspect]
     Active Substance: CINACALCET
     Indication: Product used for unknown indication
     Route: 064
  4. CINACALCET [Suspect]
     Active Substance: CINACALCET
     Route: 063
  5. TACROLIMUS [Suspect]
     Active Substance: TACROLIMUS
     Indication: Product used for unknown indication
     Route: 064
  6. TACROLIMUS [Suspect]
     Active Substance: TACROLIMUS
     Route: 063

REACTIONS (4)
  - Low birth weight baby [Unknown]
  - Premature baby [Unknown]
  - Foetal exposure during pregnancy [Unknown]
  - Exposure via breast milk [Unknown]
